FAERS Safety Report 7578879-4 (Version None)
Quarter: 2011Q2

REPORT INFORMATION
  Report Type: 
  Country: None (occurrence: None)
  Receive Date: 20110628
  Receipt Date: 20110625
  Transmission Date: 20111010
  Serious: Yes (Other)
  Sender: FDA-Public Use
  Company Number: JP-PFIZER INC-2011114496

PATIENT
  Age: 33 Year
  Sex: Male
  Weight: 85 kg

DRUGS (3)
  1. VARENICLINE TARTRATE [Suspect]
     Indication: SMOKING CESSATION THERAPY
     Dosage: 0.5 MG, DAILY
     Route: 048
     Dates: start: 20110426, end: 20110428
  2. VARENICLINE TARTRATE [Suspect]
     Indication: NICOTINE DEPENDENCE
     Dosage: 1 MG, DAILY
     Route: 048
     Dates: start: 20110429, end: 20110502
  3. VARENICLINE TARTRATE [Suspect]
     Dosage: 2 MG, DAILY
     Route: 048
     Dates: start: 20110503

REACTIONS (3)
  - VISION BLURRED [None]
  - HEART RATE INCREASED [None]
  - BLOOD PRESSURE INCREASED [None]
